FAERS Safety Report 15645621 (Version 1)
Quarter: 2018Q4

REPORT INFORMATION
  Report Type: Spontaneous
  Country: US (occurrence: US)
  Receive Date: 20181121
  Receipt Date: 20181121
  Transmission Date: 20190205
  Serious: Yes (Hospitalization)
  Sender: FDA-Public Use
  Company Number: US-PRESTIGE BRANDS -2059183

PATIENT
  Age: 1 Month
  Sex: Male

DRUGS (1)
  1. LITTLE REMEDIES GAS RELIEF DROPS [Suspect]
     Active Substance: DIMETHICONE
     Indication: FLATULENCE
     Route: 048

REACTIONS (6)
  - Sneezing [Not Recovered/Not Resolved]
  - Decreased appetite [Not Recovered/Not Resolved]
  - Cough [Not Recovered/Not Resolved]
  - Vomiting [Not Recovered/Not Resolved]
  - Weight decreased [Not Recovered/Not Resolved]
  - Cardiomegaly [Not Recovered/Not Resolved]
